FAERS Safety Report 20842219 (Version 1)
Quarter: 2022Q2

REPORT INFORMATION
  Report Type: Spontaneous
  Country: US (occurrence: US)
  Receive Date: 20220518
  Receipt Date: 20220518
  Transmission Date: 20220721
  Serious: Yes (Hospitalization, Other)
  Sender: FDA-Public Use
  Company Number: US-BRISTOL-MYERS SQUIBB COMPANY-2022-037250

PATIENT
  Age: 56 Year
  Sex: Female

DRUGS (2)
  1. YERVOY [Suspect]
     Active Substance: IPILIMUMAB
     Indication: Renal cancer stage IV
     Route: 065
     Dates: start: 20210701
  2. OPDIVO [Suspect]
     Active Substance: NIVOLUMAB
     Indication: Renal cancer stage IV
     Route: 065
     Dates: start: 20210701

REACTIONS (4)
  - Fall [Unknown]
  - Dizziness [Unknown]
  - Drug ineffective [Unknown]
  - Intentional overdose [Unknown]
